FAERS Safety Report 15951386 (Version 1)
Quarter: 2019Q1

REPORT INFORMATION
  Report Type: Spontaneous
  Country: IN (occurrence: IN)
  Receive Date: 20190212
  Receipt Date: 20190212
  Transmission Date: 20190417
  Serious: Yes (Death, Other)
  Sender: FDA-Public Use
  Company Number: IN-BIOMARINAP-IN-2019-121909

PATIENT
  Sex: Female

DRUGS (1)
  1. ALDURAZYME [Suspect]
     Active Substance: LARONIDASE
     Indication: MUCOPOLYSACCHARIDOSIS I
     Dosage: 100 INTERNATIONAL UNIT/KILOGRAM, QOW
     Route: 041
     Dates: end: 2015

REACTIONS (4)
  - Optic atrophy [Unknown]
  - Nervous system disorder [Fatal]
  - Product use issue [Unknown]
  - Paraparesis [Unknown]
